FAERS Safety Report 21279761 (Version 1)
Quarter: 2022Q3

REPORT INFORMATION
  Report Type: Report from Study
  Country: GB (occurrence: GB)
  Receive Date: 20220901
  Receipt Date: 20220901
  Transmission Date: 20221027
  Serious: Yes (Hospitalization)
  Sender: FDA-Public Use
  Company Number: GB-NOVARTISPH-NVSC2021GB179273

PATIENT
  Sex: Male

DRUGS (9)
  1. COSENTYX [Suspect]
     Active Substance: SECUKINUMAB
     Indication: Psoriatic arthropathy
     Dosage: 300 MG, QMO
     Route: 058
     Dates: start: 20190128
  2. COSENTYX [Suspect]
     Active Substance: SECUKINUMAB
     Dosage: 300 MG, QMO
     Route: 058
     Dates: start: 2019
  3. UNSPECIFIED INGREDIENT [Concomitant]
     Active Substance: UNSPECIFIED INGREDIENT
     Indication: Product used for unknown indication
     Dosage: 80 MG
     Route: 065
  4. RAMIPRIL [Concomitant]
     Active Substance: RAMIPRIL
     Indication: Product used for unknown indication
     Dosage: 10 MG
     Route: 065
  5. RAMIPRIL [Concomitant]
     Active Substance: RAMIPRIL
     Dosage: 75 UNK
     Route: 065
  6. CLOPIDOGREL [Concomitant]
     Active Substance: CLOPIDOGREL BISULFATE
     Indication: Product used for unknown indication
     Dosage: 75 MG
     Route: 065
  7. DOXAZOSIN [Concomitant]
     Active Substance: DOXAZOSIN MESYLATE
     Indication: Product used for unknown indication
     Dosage: 4 MG
     Route: 065
  8. FLUOXETINE [Concomitant]
     Active Substance: FLUOXETINE HYDROCHLORIDE
     Indication: Product used for unknown indication
     Dosage: 20 MG
     Route: 065
  9. ZALURON XL [Concomitant]
     Indication: Product used for unknown indication
     Dosage: 200 MG
     Route: 065

REACTIONS (16)
  - Dysuria [Unknown]
  - Blood urine present [Unknown]
  - Musculoskeletal stiffness [Unknown]
  - Spinal pain [Unknown]
  - Arthralgia [Unknown]
  - Skin lesion [Unknown]
  - Furuncle [Unknown]
  - Dyspepsia [Unknown]
  - Abdominal distension [Unknown]
  - Illness [Unknown]
  - Decreased appetite [Unknown]
  - Dysphagia [Unknown]
  - Dyspepsia [Unknown]
  - Back pain [Unknown]
  - Pain in extremity [Unknown]
  - Neck pain [Unknown]
